FAERS Safety Report 5320126-8 (Version None)
Quarter: 2007Q1

REPORT INFORMATION
  Report Type: 
  Country: None (occurrence: None)
  Receive Date: 20070209
  Receipt Date: 20070102
  Transmission Date: 20070707
  Serious: No
  Sender: FDA-Public Use
  Company Number: 200710150US

PATIENT
  Age: 69 Year
  Sex: Male
  Weight: 104.52 kg

DRUGS (22)
  1. APIDRA [Suspect]
     Indication: DIABETES MELLITUS
     Dates: start: 20060101
  2. APIDRA [Suspect]
     Indication: DIABETES MELLITUS
     Dosage: 1-10 UNITS SLIDING SCALE VIA CARTRIDGE U
     Dates: start: 20060101
  3. OPTICLIK [Suspect]
     Indication: DIABETES MELLITUS
  4. INSULIN GLULISINE (LANTUS) [Suspect]
     Indication: DIABETES MELLITUS
     Dates: start: 20050101
  5. LANTUS [Suspect]
     Indication: DIABETES MELLITUS
     Dosage: 30 UNITS VIA CARTRIDGE U HS
  6. OPTICLIK [Suspect]
     Indication: DIABETES MELLITUS
  7. ASPIRIN [Concomitant]
  8. VENLAFAXINE HCL [Concomitant]
  9. PSEUDOEPHEDRINE HYDROCHLORIDE, CETRIZINE HYDROCHLORIDE (ZYRTEC-D) [Concomitant]
  10. LEVOTHYROXINE SODIUM [Concomitant]
  11. FERROUS SULFATE TAB [Concomitant]
  12. VALSARTAN (DIOVANE) [Concomitant]
  13. PANTOPRAZOLE SODIUM [Concomitant]
  14. OCUTAB (NOS) [Concomitant]
  15. TESTOSTERONE (ANDROGEL) [Concomitant]
  16. SODIUM BICARBONATE [Concomitant]
  17. ASCORBIC ACID, BIOTIN, FOLIC ACID, PYRIDOXINE, CYANOCOBALAMIN, RIBOFLA [Concomitant]
  18. ROSUVASTATIN (CRESTOR /01588601/) [Concomitant]
  19. DOXAZOSIN MESYLATE [Concomitant]
  20. XENICAL [Concomitant]
  21. MULTI-VITAMIN [Concomitant]
  22. CLONIDINE (CATAPRES /00171101/) [Concomitant]

REACTIONS (3)
  - BLOOD GLUCOSE DECREASED [None]
  - BLOOD GLUCOSE INCREASED [None]
  - MEDICATION ERROR [None]
